FAERS Safety Report 8490813-1 (Version None)
Quarter: 2012Q3

REPORT INFORMATION
  Report Type: 
  Country: None (occurrence: None)
  Receive Date: 20120706
  Receipt Date: 20120626
  Transmission Date: 20120928
  Serious: No
  Sender: FDA-Public Use
  Company Number: US-BIOGENIDEC-2012BI022724

PATIENT
  Age: 47 Year
  Sex: Male

DRUGS (2)
  1. AVONEX [Suspect]
     Indication: MULTIPLE SCLEROSIS
     Route: 030
     Dates: start: 20111008, end: 20120512
  2. AVONEX [Suspect]
     Route: 030
     Dates: start: 20120508

REACTIONS (3)
  - PARAESTHESIA [None]
  - FALL [None]
  - PAIN IN EXTREMITY [None]
